FAERS Safety Report 6264947-6 (Version None)
Quarter: 2009Q3

REPORT INFORMATION
  Report Type: 
  Country: None (occurrence: None)
  Receive Date: 20090709
  Receipt Date: 20090709
  Transmission Date: 20100115
  Serious: Yes (Life-Threatening)
  Sender: FDA-Public Use
  Company Number: None

PATIENT
  Sex: Female
  Weight: 72.5755 kg

DRUGS (1)
  1. MACROBID [Suspect]
     Dosage: 2 TIMES DAILY

REACTIONS (5)
  - ERYTHEMA [None]
  - EYE HAEMORRHAGE [None]
  - FEELING HOT [None]
  - LOSS OF CONSCIOUSNESS [None]
  - VOMITING [None]
